FAERS Safety Report 15818989 (Version 2)
Quarter: 2019Q1

REPORT INFORMATION
  Report Type: Spontaneous
  Country: NL (occurrence: NL)
  Receive Date: 20190114
  Receipt Date: 20190201
  Transmission Date: 20190417
  Serious: Yes (Other)
  Sender: FDA-Public Use
  Company Number: NL-TEVA-2019-NL-998151

PATIENT
  Age: 44 Year
  Sex: Female
  Weight: 75 kg

DRUGS (7)
  1. UTROGESTAN 200 MG [Concomitant]
     Dates: start: 20181206
  2. VITAMIN D3 [Concomitant]
     Active Substance: CHOLECALCIFEROL
     Dates: start: 20180915
  3. TRAMADOL. [Suspect]
     Active Substance: TRAMADOL
     Dosage: 50 MILLIGRAM DAILY; 50 MG PER DAY
     Dates: start: 20161001
  4. B12 COMBI 6000M [Concomitant]
     Dates: start: 20180915
  5. NALTREXON CAPSULE, 1,5 MG (MILLIGRAM) [Interacting]
     Active Substance: NALTREXONE
     Indication: STRESS
     Dosage: 1 MILLIGRAM DAILY; 1 CAPSULE PER DAY?MEDICATION ERROR
     Dates: start: 20181207, end: 20181209
  6. GLYCINE MAGNESIUM [Concomitant]
     Dates: start: 20181002
  7. AMITRIPTYLLINE 25 MG [Interacting]
     Active Substance: AMITRIPTYLINE
     Dates: start: 20161001

REACTIONS (10)
  - Speech disorder [Recovering/Resolving]
  - Depressed mood [Recovering/Resolving]
  - Somnolence [Recovering/Resolving]
  - Gaze palsy [Recovering/Resolving]
  - Product label issue [Unknown]
  - Aggression [Recovering/Resolving]
  - Irritability [Recovering/Resolving]
  - Fatigue [Recovering/Resolving]
  - Feeling abnormal [Recovering/Resolving]
  - Drug interaction [Recovering/Resolving]

NARRATIVE: CASE EVENT DATE: 20181209
